FAERS Safety Report 4615470-3 (Version None)
Quarter: 2005Q1

REPORT INFORMATION
  Report Type: 
  Country: None (occurrence: None)
  Receive Date: 20050317
  Receipt Date: 20050304
  Transmission Date: 20050727
  Serious: Yes (Hospitalization)
  Sender: FDA-Public Use
  Company Number: 2005010837

PATIENT
  Age: 74 Year
  Sex: Female

DRUGS (5)
  1. AROMASIN [Suspect]
     Indication: ILL-DEFINED DISORDER
     Dosage: 25 MG DAILY, ORAL
     Route: 048
     Dates: start: 20010901
  2. ANTHRACYCLINES (ANTHRACYCLINES) [Suspect]
     Indication: ILL-DEFINED DISORDER
     Dates: start: 20010701, end: 20011101
  3. CYCLOPHOSPHAMIDE [Suspect]
     Indication: ILL-DEFINED DISORDER
     Dates: start: 20010601, end: 20011101
  4. DIOVAN HCT [Concomitant]
  5. ASPIRIN [Concomitant]

REACTIONS (3)
  - BONE MARROW DISORDER [None]
  - HYPOCHROMIC ANAEMIA [None]
  - THERAPY NON-RESPONDER [None]
